FAERS Safety Report 25628789 (Version 1)
Quarter: 2025Q3

REPORT INFORMATION
  Report Type: Report from Study
  Country: CA (occurrence: CA)
  Receive Date: 20250731
  Receipt Date: 20250731
  Transmission Date: 20251020
  Serious: Yes (Other)
  Sender: FERRING
  Company Number: CA-FERRINGPH-2025FE04044

PATIENT

DRUGS (1)
  1. DEGARELIX [Suspect]
     Active Substance: DEGARELIX
     Indication: Hormone-dependent prostate cancer
     Dosage: 80 MG, MONTHLY
     Route: 058
     Dates: start: 20211124

REACTIONS (1)
  - Injection site cellulitis [Recovered/Resolved]

NARRATIVE: CASE EVENT DATE: 20250601
